FAERS Safety Report 11596274 (Version 2)
Quarter: 2015Q4

REPORT INFORMATION
  Report Type: Spontaneous
  Country: BR (occurrence: BR)
  Receive Date: 20151006
  Receipt Date: 20151014
  Transmission Date: 20160304
  Serious: Yes (Other)
  Sender: FDA-Public Use
  Company Number: BR-JNJFOC-20151001265

PATIENT
  Age: 73 Year
  Sex: Female

DRUGS (1)
  1. SIMPONI [Suspect]
     Active Substance: GOLIMUMAB
     Indication: RHEUMATOID ARTHRITIS
     Route: 058
     Dates: end: 20150728

REACTIONS (4)
  - Drug ineffective [Unknown]
  - Labyrinthitis [Unknown]
  - Rheumatoid arthritis [Unknown]
  - Eye inflammation [Unknown]

NARRATIVE: CASE EVENT DATE: 201507
